FAERS Safety Report 10568048 (Version 1)
Quarter: 2014Q4

REPORT INFORMATION
  Report Type: Spontaneous
  Country: SZ (occurrence: None)
  Receive Date: 20141104
  Receipt Date: 20141104
  Transmission Date: 20150529
  Serious: Yes (Other)
  Sender: FDA-Public Use
  Company Number: 20140698

PATIENT
  Age: 39 Year
  Sex: Female

DRUGS (1)
  1. FERINJECT [Suspect]
     Active Substance: FERRIC CARBOXYMALTOSE
     Indication: ANAEMIA
     Dosage: 100 MG 1 IN 1
     Route: 042
     Dates: start: 20140807, end: 20140807

REACTIONS (5)
  - Exposure during pregnancy [None]
  - Blood pressure increased [None]
  - Oedema peripheral [None]
  - Palmar erythema [None]
  - Pruritus [None]

NARRATIVE: CASE EVENT DATE: 20140807
